FAERS Safety Report 16197218 (Version 2)
Quarter: 2021Q2

REPORT INFORMATION
  Report Type: Spontaneous
  Country: US (occurrence: US)
  Receive Date: 20190415
  Receipt Date: 20210507
  Transmission Date: 20210716
  Serious: No
  Sender: FDA-Public Use
  Company Number: US-MYLANLABS-2019M1029250

PATIENT
  Sex: Female
  Weight: 57 kg

DRUGS (2)
  1. VITAMIN D                          /00107901/ [Concomitant]
     Active Substance: ERGOCALCIFEROL
  2. LEVOTHYROXINE SODIUM TABLETS, USP [Suspect]
     Active Substance: LEVOTHYROXINE SODIUM
     Indication: HYPOTHYROIDISM
     Dosage: UNK
     Route: 048
     Dates: start: 20190215

REACTIONS (8)
  - Feeling abnormal [Not Recovered/Not Resolved]
  - Product substitution issue [Unknown]
  - Periarthritis [Recovering/Resolving]
  - Therapeutic product effect decreased [Unknown]
  - Illness [Unknown]
  - Influenza like illness [Recovering/Resolving]
  - Alopecia [Recovering/Resolving]
  - Pain [Recovering/Resolving]

NARRATIVE: CASE EVENT DATE: 20190215
